FAERS Safety Report 7528832-1 (Version None)
Quarter: 2011Q2

REPORT INFORMATION
  Report Type: 
  Country: None (occurrence: None)
  Receive Date: 20110607
  Receipt Date: 20101011
  Transmission Date: 20111010
  Serious: No
  Sender: FDA-Public Use
  Company Number: US-ASTRAZENECA-2010SE49982

PATIENT
  Age: 53 Year
  Sex: Female

DRUGS (6)
  1. PRILOSEC OTC [Suspect]
     Route: 048
     Dates: start: 20100822
  2. ANTIHYPERTENSIVES [Concomitant]
     Dosage: UNKNOWN
  3. SINGULAIR [Concomitant]
     Dosage: UNKNOWN
  4. DRUG USED IN DIABETES [Concomitant]
     Dosage: UNKNOWN
  5. ARTHRITIS MEDICATION [Concomitant]
     Dosage: UNKNOWN
  6. NEURONTIN [Concomitant]
     Dosage: UNKNOWN

REACTIONS (4)
  - INCORRECT DRUG ADMINISTRATION DURATION [None]
  - INJURY [None]
  - PRODUCT BLISTER PACKAGING ISSUE [None]
  - LACERATION [None]
